FAERS Safety Report 7534358-1 (Version None)
Quarter: 2011Q2

REPORT INFORMATION
  Report Type: 
  Country: None (occurrence: None)
  Receive Date: 20110608
  Receipt Date: 20110520
  Transmission Date: 20111010
  Serious: No
  Sender: FDA-Public Use
  Company Number: US-AMGEN-USASP2011026363

PATIENT
  Age: 76 Year
  Sex: Female

DRUGS (5)
  1. LOVASTATIN [Concomitant]
  2. PREVACID [Concomitant]
  3. PROLIA [Suspect]
     Indication: OSTEOPOROSIS POSTMENOPAUSAL
     Dosage: UNK UNK, Q6MO
     Dates: start: 20110405
  4. SYNTHROID [Concomitant]
  5. VITAMINS                           /00067501/ [Concomitant]

REACTIONS (2)
  - RASH PRURITIC [None]
  - PRURITUS [None]
